FAERS Safety Report 8396467 (Version 2)
Quarter: 2015Q4

REPORT INFORMATION
  Report Type: Spontaneous
  Country: US (occurrence: US)
  Receive Date: 20120208
  Receipt Date: 20151214
  Transmission Date: 20160305
  Serious: Yes (Other)
  Sender: FDA-Public Use
  Company Number: US-ROCHE-792664

PATIENT
  Sex: Female
  Weight: 45.4 kg

DRUGS (1)
  1. ACCUTANE [Suspect]
     Active Substance: ISOTRETINOIN
     Indication: ACNE
     Route: 065
     Dates: start: 19910101, end: 19911231

REACTIONS (7)
  - Alopecia [Unknown]
  - Dry eye [Unknown]
  - Inflammatory bowel disease [Unknown]
  - Crohn^s disease [Unknown]
  - Appendicitis perforated [Unknown]
  - Irritable bowel syndrome [Unknown]
  - Gallbladder disorder [Unknown]

NARRATIVE: CASE EVENT DATE: 1991
